FAERS Safety Report 6916411-6 (Version None)
Quarter: 2010Q3

REPORT INFORMATION
  Report Type: 
  Country: None (occurrence: None)
  Receive Date: 20100810
  Receipt Date: 20100803
  Transmission Date: 20110219
  Serious: Yes (Other)
  Sender: FDA-Public Use
  Company Number: JP-B.I. PHARMACEUTICALS,INC./RIDGEFIELD-2010-BP-08410BP

PATIENT
  Sex: Male

DRUGS (4)
  1. MOBIC [Suspect]
     Indication: CHEST PAIN
     Route: 048
     Dates: start: 20100623
  2. MOBIC [Suspect]
     Indication: BACK PAIN
  3. RAPAFLO [Suspect]
     Indication: BLADDER OBSTRUCTION
     Dosage: 4 MG
     Route: 048
     Dates: start: 20100623, end: 20100623
  4. RAPAFLO [Suspect]
     Indication: BENIGN PROSTATIC HYPERPLASIA

REACTIONS (5)
  - APHAGIA [None]
  - DEHYDRATION [None]
  - DIARRHOEA [None]
  - MALAISE [None]
  - NAUSEA [None]
